FAERS Safety Report 5048046-7 (Version None)
Quarter: 2006Q3

REPORT INFORMATION
  Report Type: 
  Country: None (occurrence: None)
  Receive Date: 20060710
  Receipt Date: 20060710
  Transmission Date: 20061208
  Serious: No
  Sender: FDA-Public Use
  Company Number: None

PATIENT
  Sex: Female
  Weight: 61.2356 kg

DRUGS (1)
  1. EFFEXOR XR [Suspect]
     Indication: DEPRESSION
     Dosage: TAPERED FROM 150 MG    PO
     Route: 048

REACTIONS (22)
  - ABDOMINAL DISCOMFORT [None]
  - ANOREXIA [None]
  - BONE PAIN [None]
  - DIARRHOEA [None]
  - DRUG WITHDRAWAL SYNDROME [None]
  - HYPERACUSIS [None]
  - HYPERHIDROSIS [None]
  - HYPOKINESIA [None]
  - INSOMNIA [None]
  - MALAISE [None]
  - MYALGIA [None]
  - NIGHTMARE [None]
  - ORAL INTAKE REDUCED [None]
  - PAIN OF SKIN [None]
  - PAROSMIA [None]
  - PHOTOPHOBIA [None]
  - POOR QUALITY SLEEP [None]
  - SLEEP DISORDER [None]
  - STOMACH DISCOMFORT [None]
  - SUICIDAL IDEATION [None]
  - TINNITUS [None]
  - VAGINAL HAEMORRHAGE [None]
